FAERS Safety Report 15695188 (Version 1)
Quarter: 2018Q4

REPORT INFORMATION
  Report Type: Spontaneous
  Country: US (occurrence: US)
  Receive Date: 20181206
  Receipt Date: 20181206
  Transmission Date: 20190205
  Serious: No
  Sender: FDA-Public Use
  Company Number: US-ENDO PHARMACEUTICALS INC-2018-042092

PATIENT
  Age: 71 Year
  Sex: Male
  Weight: 90.7 kg

DRUGS (13)
  1. XIAFLEX [Suspect]
     Active Substance: COLLAGENASE CLOSTRIDIUM HISTOLYTICUM
     Dosage: 0.25 CC, 1 INJECTION, TWICE-A-WEEK 6 WEEKS APART
     Route: 026
     Dates: start: 20170608
  2. XIAFLEX [Suspect]
     Active Substance: COLLAGENASE CLOSTRIDIUM HISTOLYTICUM
     Indication: PEYRONIE^S DISEASE
     Dosage: 0.25 CC, 1 INJECTION, TWICE-A-WEEK 6 WEEKS APART
     Route: 026
     Dates: start: 20170717
  3. XIAFLEX [Suspect]
     Active Substance: COLLAGENASE CLOSTRIDIUM HISTOLYTICUM
     Dosage: 0.25 CC, 1 INJECTION, TWICE-A-WEEK 6 WEEKS APART
     Route: 026
     Dates: start: 20170607
  4. XIAFLEX [Suspect]
     Active Substance: COLLAGENASE CLOSTRIDIUM HISTOLYTICUM
     Dosage: 0.25 CC, 1 INJECTION, TWICE-A-WEEK 6 WEEKS APART
     Route: 026
     Dates: start: 20180108
  5. VITAMIN B [Concomitant]
     Active Substance: VITAMIN B
     Indication: PRODUCT USED FOR UNKNOWN INDICATION
  6. XIAFLEX [Suspect]
     Active Substance: COLLAGENASE CLOSTRIDIUM HISTOLYTICUM
     Dosage: 0.25 CC, 1 INJECTION, TWICE-A-WEEK 6 WEEKS APART
     Route: 026
     Dates: start: 20180109
  7. MULTIVITAMIN                       /07504101/ [Concomitant]
     Active Substance: VITAMINS
     Indication: PRODUCT USED FOR UNKNOWN INDICATION
  8. VITAMIN C [Concomitant]
     Active Substance: ASCORBIC ACID
     Indication: PRODUCT USED FOR UNKNOWN INDICATION
  9. XYLOCAINE [Concomitant]
     Active Substance: LIDOCAINE HYDROCHLORIDE
     Indication: PRODUCT USED FOR UNKNOWN INDICATION
     Dosage: 0.2 CC, 10 SECONDS PRIOR TO XIAFLEX
     Route: 026
  10. XIAFLEX [Suspect]
     Active Substance: COLLAGENASE CLOSTRIDIUM HISTOLYTICUM
     Dosage: 0.25 CC, 1 INJECTION, TWICE-A-WEEK 6 WEEKS APART
     Route: 026
     Dates: start: 20170829
  11. XIAFLEX [Suspect]
     Active Substance: COLLAGENASE CLOSTRIDIUM HISTOLYTICUM
     Dosage: UNK UNKNOWN, UNKNOWN
     Route: 026
  12. XIAFLEX [Suspect]
     Active Substance: COLLAGENASE CLOSTRIDIUM HISTOLYTICUM
     Dosage: 0.25 CC, 1 INJECTION, TWICE-A-WEEK 6 WEEKS APART
     Route: 026
     Dates: start: 20170403
  13. XIAFLEX [Suspect]
     Active Substance: COLLAGENASE CLOSTRIDIUM HISTOLYTICUM
     Dosage: 0.25 CC, 1 INJECTION, TWICE-A-WEEK 6 WEEKS APART
     Route: 026
     Dates: start: 20170718

REACTIONS (2)
  - Penile haematoma [Recovered/Resolved]
  - Inappropriate schedule of product administration [Recovered/Resolved]

NARRATIVE: CASE EVENT DATE: 20170403
